FAERS Safety Report 9648257 (Version 1)
Quarter: 2013Q4

REPORT INFORMATION
  Report Type: Spontaneous
  Country: US (occurrence: None)
  Receive Date: 20131024
  Receipt Date: 20131024
  Transmission Date: 20140711
  Serious: Yes (Disabling)
  Sender: FDA-Public Use
  Company Number: None

PATIENT
  Age: 27 None
  Sex: Female

DRUGS (4)
  1. MIRENA [Suspect]
     Indication: CONTRACEPTION
     Dates: start: 20080918
  2. EXFORGE [Concomitant]
  3. WATER PILL [Concomitant]
  4. DIAMOX [Concomitant]

REACTIONS (2)
  - Benign intracranial hypertension [None]
  - Headache [None]
